FAERS Safety Report 4691194-1 (Version None)
Quarter: 2005Q2

REPORT INFORMATION
  Report Type: 
  Country: None (occurrence: None)
  Receive Date: 20050610
  Receipt Date: 20050601
  Transmission Date: 20051028
  Serious: Yes (Hospitalization)
  Sender: FDA-Public Use
  Company Number: 213167

PATIENT
  Age: 55 Year
  Sex: Female
  Weight: 83.9 kg

DRUGS (7)
  1. XOLAIR [Suspect]
     Indication: ASTHMA
     Dosage: 150 UNK, 1/WEEK, SUBCUTANEOUS
     Route: 058
  2. ANTIHYPERTENSIVES (ANTIHYPERTENSIVES NOS) [Concomitant]
  3. EFFEXOR [Concomitant]
  4. PROTONIX [Concomitant]
  5. SINGULAIR [Concomitant]
  6. STEROIDS (UNK INGREDIENTS) (STEROID NOS) [Concomitant]
  7. NEBULIZER (UNK INGREDIENTS) (RESPIRATORY TREATMENTS AND DEVICES) [Concomitant]

REACTIONS (15)
  - ANAPHYLACTIC REACTION [None]
  - BLOOD PRESSURE INCREASED [None]
  - BURNING SENSATION [None]
  - CHEST DISCOMFORT [None]
  - DYSPEPSIA [None]
  - FAECAL INCONTINENCE [None]
  - HEART RATE INCREASED [None]
  - HYPOAESTHESIA [None]
  - HYPOTENSION [None]
  - INFLUENZA [None]
  - LOSS OF CONSCIOUSNESS [None]
  - OXYGEN SATURATION DECREASED [None]
  - PO2 DECREASED [None]
  - URINARY INCONTINENCE [None]
  - VOMITING [None]
